FAERS Safety Report 24849580 (Version 1)
Quarter: 2025Q1

REPORT INFORMATION
  Report Type: Spontaneous
  Country: GB (occurrence: GB)
  Receive Date: 20250116
  Receipt Date: 20250116
  Transmission Date: 20250409
  Serious: Yes (Hospitalization)
  Sender: MYLAN
  Company Number: GB-MYLANLABS-2025M1001139

PATIENT
  Sex: Male
  Weight: 83.4 kg

DRUGS (3)
  1. CLOZARIL [Suspect]
     Active Substance: CLOZAPINE
     Indication: Schizophrenia
     Dosage: 400 MILLIGRAM, QD (ONCE DAILY)
     Route: 048
     Dates: start: 20141110, end: 20250102
  2. VALPROIC ACID [Concomitant]
     Active Substance: VALPROIC ACID
     Route: 048
     Dates: start: 20231129
  3. LITHIUM [Concomitant]
     Active Substance: LITHIUM
     Dosage: 1000 MILLIGRAM, PM (AT NIGHT)
     Route: 048
     Dates: start: 20231129

REACTIONS (3)
  - Fall [Unknown]
  - Confusional state [Unknown]
  - Head injury [Unknown]
